APPROVED DRUG PRODUCT: TOBRAMYCIN SULFATE
Active Ingredient: TOBRAMYCIN SULFATE
Strength: EQ 1.2GM BASE/VIAL
Dosage Form/Route: INJECTABLE;INJECTION
Application: A065013 | Product #001 | TE Code: AP
Applicant: XGEN PHARMACEUTICALS DJB INC
Approved: Aug 17, 2001 | RLD: No | RS: Yes | Type: RX